FAERS Safety Report 10059110 (Version 2)
Quarter: 2014Q2

REPORT INFORMATION
  Report Type: Report from Study
  Country: US (occurrence: US)
  Receive Date: 20140404
  Receipt Date: 20140404
  Transmission Date: 20141212
  Serious: Yes (Hospitalization)
  Sender: FDA-Public Use
  Company Number: US-BRISTOL-MYERS SQUIBB COMPANY-16054686

PATIENT
  Age: 77 Year
  Sex: Female
  Weight: 69.4 kg

DRUGS (13)
  1. IPILIMUMAB [Suspect]
     Indication: MALIGNANT MELANOMA
     Dosage: LAST ADMIN:635MG, 27DEC11. NO OF COURSE: 8.?LAST DOSE 22AUG11
     Route: 042
     Dates: start: 20110801
  2. AMLODIPINE BESYLATE+BENAZEPRIL HCL [Concomitant]
     Dosage: PRODUCT STRENGTH IS 10/40
     Route: 048
  3. CALCIUM + VITAMIN D [Concomitant]
     Dosage: 1DF=1 TAB(CALCIUM 600MG+VITAMIN D 400IU)
     Route: 048
  4. CLORAZEPATE DIPOTASSIUM [Concomitant]
     Dosage: TAB
     Route: 048
  5. COLACE CAPS 100 MG [Concomitant]
     Route: 048
  6. COMPAZINE [Concomitant]
     Indication: NAUSEA
     Dosage: TABS TAKE AS NECESSARY
     Route: 048
  7. LASIX [Concomitant]
     Route: 048
  8. OXYCODONE [Concomitant]
     Indication: PAIN
     Dosage: 5MG TABLET
     Route: 048
  9. PLAVIX TABS [Concomitant]
     Route: 048
  10. TYLENOL EXTRA STRENGTH [Concomitant]
     Dosage: TAKE 2 500MG TABS
     Route: 048
  11. VITAMIN D3 [Concomitant]
     Dosage: TABS?1DF=2000UNITS
     Route: 048
  12. ZETIA [Concomitant]
     Dosage: TABS
     Route: 048
  13. ZOFRAN [Concomitant]
     Indication: NAUSEA
     Dosage: TAKE 1 TAB
     Route: 048

REACTIONS (6)
  - Urinary tract infection [Recovered/Resolved]
  - White blood cell count increased [Recovered/Resolved]
  - Pyrexia [Recovered/Resolved]
  - Constipation [Recovered/Resolved]
  - Groin pain [Recovered/Resolved]
  - Nausea [Recovered/Resolved]
